FAERS Safety Report 5599798-9 (Version None)
Quarter: 2008Q1

REPORT INFORMATION
  Report Type: 
  Country: None (occurrence: None)
  Receive Date: 20080118
  Receipt Date: 20071228
  Transmission Date: 20080703
  Serious: Yes (Hospitalization, Other)
  Sender: FDA-Public Use
  Company Number: GB-2007-039283

PATIENT
  Age: 21 Year
  Sex: Female

DRUGS (1)
  1. MICROGYNON 30 (21) [Suspect]

REACTIONS (5)
  - BLINDNESS UNILATERAL [None]
  - EYE DISORDER [None]
  - EYE INFECTION [None]
  - THROMBOSIS [None]
  - TOXOPLASMOSIS [None]
